FAERS Safety Report 6911335-2 (Version None)
Quarter: 2010Q3

REPORT INFORMATION
  Report Type: 
  Country: None (occurrence: None)
  Receive Date: 20100719
  Receipt Date: 20090518
  Transmission Date: 20110219
  Serious: No
  Sender: FDA-Public Use
  Company Number: US-WYE-H09410709

PATIENT

DRUGS (1)
  1. ADVIL [Suspect]
     Dosage: TOOK 2 TABLETS, ORAL
     Route: 048

REACTIONS (2)
  - DYSURIA [None]
  - MICTURITION URGENCY [None]
